FAERS Safety Report 24653687 (Version 1)
Quarter: 2024Q4

REPORT INFORMATION
  Report Type: Spontaneous
  Country: GB (occurrence: GB)
  Receive Date: 20241122
  Receipt Date: 20241122
  Transmission Date: 20250115
  Serious: Yes (Life-Threatening, Other)
  Sender: TEVA
  Company Number: None

PATIENT
  Age: 100 Day
  Sex: Male
  Weight: 2 kg

DRUGS (1)
  1. SILDENAFIL [Suspect]
     Active Substance: SILDENAFIL
     Indication: Neonatal pulmonary hypertension
     Dosage: 70 MICROGRAMS/KG/HOUR
     Route: 065
     Dates: start: 20241030

REACTIONS (1)
  - Neonatal hypotension [Recovered/Resolved]

NARRATIVE: CASE EVENT DATE: 20241031
